FAERS Safety Report 6018580-1 (Version None)
Quarter: 2008Q4

REPORT INFORMATION
  Report Type: 
  Country: None (occurrence: None)
  Receive Date: 20081223
  Receipt Date: 20081204
  Transmission Date: 20090506
  Serious: No
  Sender: FDA-Public Use
  Company Number: US-B.I. PHARMACEUTICALS,INC./RIDGEFIELD-2008-BP-18274BP

PATIENT
  Age: 72 Year
  Sex: Female

DRUGS (3)
  1. MIRAPEX [Suspect]
     Indication: RESTLESS LEGS SYNDROME
     Dosage: .25MG
     Route: 048
  2. CLONAZEPAM [Concomitant]
     Dosage: .5MG
  3. BETA BLOCKER [Concomitant]
     Indication: HYPERTENSION

REACTIONS (2)
  - COUGH [None]
  - DRUG INEFFECTIVE [None]
